FAERS Safety Report 7400097-0 (Version None)
Quarter: 2011Q2

REPORT INFORMATION
  Report Type: 
  Country: None (occurrence: None)
  Receive Date: 20110407
  Receipt Date: 20100212
  Transmission Date: 20111010
  Serious: Yes (Other)
  Sender: FDA-Public Use
  Company Number: PHHY2010DE90862

PATIENT
  Sex: Female

DRUGS (1)
  1. EXTAVIA [Suspect]
     Indication: MULTIPLE SCLEROSIS
     Dosage: UNK
     Route: 058
     Dates: start: 20091111

REACTIONS (8)
  - MULTIPLE SCLEROSIS RELAPSE [None]
  - SKIN INJURY [None]
  - LYME DISEASE [None]
  - TENDONITIS [None]
  - VIITH NERVE PARALYSIS [None]
  - VERTIGO [None]
  - HYPERHIDROSIS [None]
  - CHILLS [None]
